FAERS Safety Report 20437336 (Version 1)
Quarter: 2022Q1

REPORT INFORMATION
  Report Type: Spontaneous
  Country: AU (occurrence: AU)
  Receive Date: 20220207
  Receipt Date: 20220207
  Transmission Date: 20220423
  Serious: Yes (Other)
  Sender: FDA-Public Use
  Company Number: AU-009507513-2202AUS000868

PATIENT
  Age: 78 Year
  Sex: Male

DRUGS (3)
  1. BCG LIVE [Suspect]
     Active Substance: BACILLUS CALMETTE-GUERIN SUBSTRAIN TICE LIVE ANTIGEN
     Indication: Bladder cancer
     Dosage: UNK, WEEKLY DOSES FOR 6 CONSECUTIVE WEEKS (INDUCTION)
     Route: 043
  2. BCG LIVE [Suspect]
     Active Substance: BACILLUS CALMETTE-GUERIN SUBSTRAIN TICE LIVE ANTIGEN
     Dosage: UNK UNK, QM (MAINTENANCE COURSE)
     Route: 043
  3. PREDNISOLONE [Concomitant]
     Active Substance: PREDNISOLONE
     Route: 048

REACTIONS (3)
  - Urethral fistula [Unknown]
  - Perineal infection [Unknown]
  - Infected cyst [Unknown]
